FAERS Safety Report 20206889 (Version 2)
Quarter: 2021Q4

REPORT INFORMATION
  Report Type: Report from Study
  Country: US (occurrence: US)
  Receive Date: 20211220
  Receipt Date: 20211227
  Transmission Date: 20220304
  Serious: No
  Sender: FDA-Public Use
  Company Number: US-NOVARTISTESTPH-NVSC2021US291393

PATIENT
  Sex: Female

DRUGS (2)
  1. MAYZENT [Suspect]
     Active Substance: SIPONIMOD
     Indication: Multiple sclerosis relapse
     Dosage: 2 MG, QD
     Route: 048
     Dates: start: 20211209
  2. MAYZENT [Suspect]
     Active Substance: SIPONIMOD
     Dosage: 2 UNK
     Route: 048
     Dates: start: 20211214

REACTIONS (1)
  - Headache [Recovering/Resolving]
